FAERS Safety Report 21583171 (Version 1)
Quarter: 2022Q4

REPORT INFORMATION
  Report Type: Spontaneous
  Country: CA (occurrence: CA)
  Receive Date: 20221111
  Receipt Date: 20221111
  Transmission Date: 20230113
  Serious: Yes (Other)
  Sender: FDA-Public Use
  Company Number: CA-BAYER-2022P020692

PATIENT
  Sex: Female

DRUGS (1)
  1. YAZ [Suspect]
     Active Substance: DROSPIRENONE\ETHINYL ESTRADIOL
     Indication: Contraception
     Dosage: UNK
     Route: 048
     Dates: start: 20090421, end: 20120917

REACTIONS (5)
  - Retinal vein occlusion [None]
  - Macular oedema [None]
  - Visual impairment [None]
  - Eye pain [None]
  - Vision blurred [None]
